FAERS Safety Report 8068185-6 (Version None)
Quarter: 2012Q1

REPORT INFORMATION
  Report Type: 
  Country: None (occurrence: None)
  Receive Date: 20120124
  Receipt Date: 20110906
  Transmission Date: 20120608
  Serious: No
  Sender: FDA-Public Use
  Company Number: US-AMGEN-USASP2011045540

PATIENT
  Sex: Female

DRUGS (6)
  1. PROLIA [Suspect]
     Indication: OSTEOPOROSIS POSTMENOPAUSAL
     Dosage: 60 MG, Q6MO
     Dates: start: 20110701
  2. VITAMIN D [Concomitant]
  3. COREG [Concomitant]
  4. SPIRIVA [Concomitant]
  5. CALCIUM [Concomitant]
  6. LEVOTHYROXINE SODIUM [Concomitant]

REACTIONS (6)
  - RASH MACULAR [None]
  - RASH ERYTHEMATOUS [None]
  - INSOMNIA [None]
  - ACNE [None]
  - CYSTITIS [None]
  - PRURITUS [None]
